FAERS Safety Report 16354119 (Version 1)
Quarter: 2019Q2

REPORT INFORMATION
  Report Type: Spontaneous
  Country: DE (occurrence: DE)
  Receive Date: 20190524
  Receipt Date: 20190524
  Transmission Date: 20190711
  Serious: Yes (Death, Other)
  Sender: FDA-Public Use
  Company Number: DE-ASTRAZENECA-2019SE75650

PATIENT
  Age: 70 Year
  Sex: Male

DRUGS (6)
  1. HALDOL [Interacting]
     Active Substance: HALOPERIDOL
     Route: 065
     Dates: start: 20081204
  2. SEROQUEL [Suspect]
     Active Substance: QUETIAPINE FUMARATE
     Dosage: SLOWLY INCREASED DOSAGE SINCE 13-DEC-2008
     Route: 065
     Dates: start: 20081222
  3. REMERGIL [Interacting]
     Active Substance: MIRTAZAPINE
     Route: 065
     Dates: start: 20081224
  4. DIAZEPAM. [Interacting]
     Active Substance: DIAZEPAM
     Route: 065
  5. CIPRALEX [Interacting]
     Active Substance: ESCITALOPRAM OXALATE
     Route: 065
     Dates: start: 20081224
  6. ERGENYL [Interacting]
     Active Substance: VALPROIC ACID
     Route: 065
     Dates: start: 20081213

REACTIONS (1)
  - Death [Fatal]

NARRATIVE: CASE EVENT DATE: 20090107
